FAERS Safety Report 18112787 (Version 3)
Quarter: 2020Q4

REPORT INFORMATION
  Report Type: Spontaneous
  Country: US (occurrence: US)
  Receive Date: 20200805
  Receipt Date: 20201012
  Transmission Date: 20210113
  Serious: Yes (Other)
  Sender: FDA-Public Use
  Company Number: US-SA-2020SA201978

PATIENT

DRUGS (2)
  1. KEVZARA [Suspect]
     Active Substance: SARILUMAB
     Dosage: 200 MG, (FREQUENCY: OTHER)
     Route: 058
     Dates: start: 201909
  2. KEVZARA [Suspect]
     Active Substance: SARILUMAB
     Dosage: 200 MG, (FREQUENCY: OTHER)
     Route: 058
     Dates: start: 202007

REACTIONS (6)
  - SARS-CoV-2 test positive [Unknown]
  - Peripheral swelling [Unknown]
  - COVID-19 [Unknown]
  - Condition aggravated [Unknown]
  - Drug ineffective [Unknown]
  - Pain in extremity [Unknown]

NARRATIVE: CASE EVENT DATE: 202007
